FAERS Safety Report 7758825-0 (Version None)
Quarter: 2011Q3

REPORT INFORMATION
  Report Type: 
  Country: None (occurrence: None)
  Receive Date: 20110825
  Receipt Date: 20110712
  Transmission Date: 20111222
  Serious: Yes (Hospitalization, Other)
  Sender: FDA-Public Use
  Company Number: 327894

PATIENT
  Age: 69 Year
  Sex: Male
  Weight: 121.1 kg

DRUGS (11)
  1. VERAPAMIL [Concomitant]
  2. METFORMIN HCL [Concomitant]
  3. AMBIEN [Concomitant]
  4. ASPIRIN [Concomitant]
  5. COZAAR [Concomitant]
  6. FISH OIL (FISH OIL) [Concomitant]
  7. COQ (UBIDECARENONE) [Concomitant]
  8. GLUCOSAMINE (GLUCOSAMINE) [Concomitant]
  9. VICTOZA [Suspect]
     Indication: TYPE 2 DIABETES MELLITUS
     Dosage: 1.8 MG, QD, SUBCUTANEOUS
     Route: 058
     Dates: start: 20100901, end: 20110427
  10. ERGOCALCIFEROL [Concomitant]
  11. WARFARIN SODIUM [Concomitant]

REACTIONS (1)
  - PANCREATITIS [None]
